FAERS Safety Report 10957625 (Version 2)
Quarter: 2015Q3

REPORT INFORMATION
  Report Type: Not Available
  Country: FR (occurrence: FR)
  Receive Date: 20150326
  Receipt Date: 20150814
  Transmission Date: 20151125
  Serious: Yes (Death, Other)
  Sender: FDA-Public Use
  Company Number: FR-CELGENE-056-50794-13093223

PATIENT

DRUGS (6)
  1. VIDAZA [Suspect]
     Active Substance: AZACITIDINE
     Indication: ACUTE MYELOID LEUKAEMIA
  2. VIDAZA [Suspect]
     Active Substance: AZACITIDINE
     Indication: CHRONIC MYELOMONOCYTIC LEUKAEMIA
  3. IDARUBICIN [Concomitant]
     Active Substance: IDARUBICIN
     Route: 041
  4. VIDAZA [Suspect]
     Active Substance: AZACITIDINE
     Indication: MYELODYSPLASTIC SYNDROME
     Dosage: 18.75 MILLIGRAM/SQ. METER
     Route: 058
  5. IDARUBICIN [Concomitant]
     Active Substance: IDARUBICIN
     Indication: MYELODYSPLASTIC SYNDROME
     Route: 041
  6. IDARUBICIN [Concomitant]
     Active Substance: IDARUBICIN
     Route: 041

REACTIONS (8)
  - Death [Fatal]
  - Disease progression [Unknown]
  - Haemorrhage [Unknown]
  - Pancytopenia [Unknown]
  - Infection [Unknown]
  - Ejection fraction decreased [Unknown]
  - Adverse event [Unknown]
  - Febrile neutropenia [Unknown]
